FAERS Safety Report 6030023-0 (Version None)
Quarter: 2008Q4

REPORT INFORMATION
  Report Type: 
  Country: None (occurrence: None)
  Receive Date: 20081222
  Receipt Date: 20080923
  Transmission Date: 20090506
  Serious: No
  Sender: FDA-Public Use
  Company Number: US-WYE-H06103308

PATIENT
  Age: 66 Year
  Sex: Female
  Weight: 52.21 kg

DRUGS (8)
  1. PRISTIQ [Suspect]
     Indication: DEPRESSION
     Dosage: 0.5 TABLET 1X PER 1 DAY, ORAL
     Route: 048
     Dates: start: 20080601, end: 20080101
  2. PRISTIQ [Suspect]
     Indication: DEPRESSION
     Dosage: 0.5 TABLET 1X PER 1 DAY, ORAL
     Route: 048
     Dates: start: 20080101, end: 20080902
  3. WELLBUTRIN [Concomitant]
  4. HYDROCHLOROTHIAZIDE [Concomitant]
  5. NORVASC [Concomitant]
  6. DIOVAN [Concomitant]
  7. FOSAMAX [Concomitant]
  8. LUNESTA [Concomitant]

REACTIONS (2)
  - BLOOD POTASSIUM DECREASED [None]
  - HALLUCINATION, AUDITORY [None]
